FAERS Safety Report 11866081 (Version 1)
Quarter: 2015Q4

REPORT INFORMATION
  Report Type: Spontaneous
  Country: GB (occurrence: GB)
  Receive Date: 20151223
  Receipt Date: 20151223
  Transmission Date: 20160305
  Serious: Yes (Other)
  Sender: FDA-Public Use
  Company Number: GB-WATSON-2015-14790

PATIENT
  Age: 83 Year
  Sex: Female

DRUGS (4)
  1. METRONIDAZOLE (UNKNOWN) [Suspect]
     Active Substance: METRONIDAZOLE
     Indication: DIVERTICULITIS
     Dosage: 400 MG, TID (FIRST COURSE COMPLETED)
     Route: 065
     Dates: start: 20150420
  2. HYOSCINE BUTYLBROMIDE [Concomitant]
     Active Substance: BUTYLSCOPOLAMINE
     Indication: DIVERTICULITIS
     Dosage: 10 MG, TID (COURSE COMPLETED)
     Route: 065
     Dates: start: 20150420
  3. METRONIDAZOLE (UNKNOWN) [Suspect]
     Active Substance: METRONIDAZOLE
     Dosage: 400 MG, TID (SECOND COURSE COMPLETED)
     Route: 065
     Dates: start: 20150506
  4. AMOXICILLIN. [Concomitant]
     Active Substance: AMOXICILLIN
     Indication: DIVERTICULITIS
     Dosage: 500 MG, TID (COMPLETED COURSE)
     Route: 065
     Dates: start: 20150420

REACTIONS (6)
  - Glossodynia [Not Recovered/Not Resolved]
  - Oral candidiasis [Not Recovered/Not Resolved]
  - Chromaturia [Recovered/Resolved]
  - Tongue discolouration [Not Recovered/Not Resolved]
  - Dysgeusia [Not Recovered/Not Resolved]
  - Tongue coated [Not Recovered/Not Resolved]
